FAERS Safety Report 4571644-1 (Version None)
Quarter: 2005Q1

REPORT INFORMATION
  Report Type: 
  Country: None (occurrence: None)
  Receive Date: 20050207
  Receipt Date: 20041004
  Transmission Date: 20050727
  Serious: Yes (Hospitalization)
  Sender: FDA-Public Use
  Company Number: CZ-BRISTOL-MYERS SQUIBB COMPANY-12720389

PATIENT
  Age: 20 Year
  Sex: Male

DRUGS (3)
  1. ARIPIPRAZOLE [Suspect]
     Indication: SCHIZOPHRENIA
     Dosage: 15MG 29-SEP-2004 TO 04-OCT-2004, INCREASED TO 30MG 05-OCT-2004 TO 24-OCT-2004.
     Route: 048
     Dates: start: 20040929, end: 20041024
  2. CITALOPRAM [Concomitant]
     Dates: start: 20040212
  3. QUETIAPINE [Concomitant]
     Dates: start: 20041025

REACTIONS (1)
  - SCHIZOPHRENIA [None]
